FAERS Safety Report 8966782 (Version 1)
Quarter: 2012Q4

REPORT INFORMATION
  Report Type: Report from Study
  Country: US (occurrence: US)
  Receive Date: 20121217
  Receipt Date: 20121217
  Transmission Date: 20130627
  Serious: Yes (Hospitalization, Other)
  Sender: FDA-Public Use
  Company Number: US-JNJFOC-20121203677

PATIENT
  Sex: Female
  Weight: 72.58 kg

DRUGS (7)
  1. REMICADE [Suspect]
     Indication: CROHN^S DISEASE
     Route: 042
     Dates: start: 2011
  2. POTASSIUM [Concomitant]
     Route: 065
  3. MAGNESIUM [Concomitant]
     Route: 065
  4. HYDROCHLOROTHIAZIDE [Concomitant]
     Indication: HYPERTENSION
     Route: 065
  5. ZOLOFT [Concomitant]
     Route: 065
  6. B12 SHOT [Concomitant]
     Route: 065
  7. TYLENOL [Concomitant]
     Indication: PAIN
     Route: 065

REACTIONS (10)
  - Spinal fusion surgery [Unknown]
  - Knee arthroplasty [Unknown]
  - Blood potassium decreased [Unknown]
  - Crohn^s disease [Unknown]
  - Decreased appetite [Not Recovered/Not Resolved]
  - Weight decreased [Not Recovered/Not Resolved]
  - Iron deficiency [Unknown]
  - Urinary tract infection [Recovered/Resolved]
  - Feeling abnormal [Not Recovered/Not Resolved]
  - Fatigue [Not Recovered/Not Resolved]
